FAERS Safety Report 8776002 (Version 3)
Quarter: 2012Q4

REPORT INFORMATION
  Report Type: 
  Country: JP (occurrence: JP)
  Receive Date: 20120910
  Receipt Date: 20121017
  Transmission Date: 20130627
  Serious: Yes (Hospitalization, Disabling)
  Sender: FDA-Public Use
  Company Number: JP-UCBSA-065025

PATIENT
  Age: 84 Year
  Sex: Male

DRUGS (14)
  1. E KEPPRA [Suspect]
     Indication: EPILEPSY
     Route: 048
     Dates: start: 20120727, end: 20120731
  2. CALONAL [Concomitant]
     Indication: HEADACHE
     Dosage: DAILY DOSE:200 MG
     Route: 048
     Dates: start: 20120727
  3. MUCODYNE [Concomitant]
     Dosage: DAILY DOSE:1000 MG
     Route: 048
  4. LASIX [Concomitant]
     Dosage: DAILY DOSE:40 MG
     Route: 048
  5. URSO [Concomitant]
     Dosage: DAILY DOSE:150 MG
     Route: 048
  6. MAGLAX [Concomitant]
     Dosage: DAILY DOSE:990 MG
     Route: 048
  7. POTASSIUM GLUCONATE [Concomitant]
     Dosage: DAILY DOSE:5 MEQ
     Route: 048
  8. FLIVAS OD [Concomitant]
     Dosage: DAILY DOSE:50 MG
     Route: 048
  9. VESICARE OD [Concomitant]
     Dosage: DAILY DOSE:5 MG
     Route: 048
  10. AMLODIN [Concomitant]
     Dosage: DAILY DOSE:2.5 MG
     Route: 048
  11. BENZMARONE [Concomitant]
     Dosage: DAILY DOSE:750 MG
     Route: 048
  12. VITAMEDIN [Concomitant]
     Dosage: DAILY DOSE:1 DF
     Route: 042
     Dates: start: 20120727
  13. HEPARIN [Concomitant]
     Indication: CEREBRAL INFARCTION
     Dosage: DAILY DOSE:10000 IU
     Route: 042
     Dates: start: 20120727
  14. GAMOFA [Concomitant]
     Dosage: DAILY DOSE:20 MG
     Route: 042
     Dates: start: 20120727

REACTIONS (1)
  - Ileus paralytic [Recovered/Resolved]
